FAERS Safety Report 21763265 (Version 1)
Quarter: 2022Q4

REPORT INFORMATION
  Report Type: Report from Study
  Country: KR (occurrence: KR)
  Receive Date: 20221221
  Receipt Date: 20221221
  Transmission Date: 20230113
  Serious: Yes (Other)
  Sender: FDA-Public Use
  Company Number: KR-TAKEDA-2022TUS097546

PATIENT
  Age: 28 Year
  Sex: Male
  Weight: 77.9 kg

DRUGS (4)
  1. BRENTUXIMAB VEDOTIN [Suspect]
     Active Substance: BRENTUXIMAB VEDOTIN
     Indication: Hodgkin^s disease refractory
     Dosage: 140.22 MILLIGRAM
     Route: 042
     Dates: start: 20221122, end: 20221214
  2. CISPLATIN [Suspect]
     Active Substance: CISPLATIN
     Indication: Hodgkin^s disease refractory
     Dosage: 193 MILLIGRAM
     Route: 042
     Dates: start: 20221122, end: 20221123
  3. CYTARABINE [Suspect]
     Active Substance: CYTARABINE
     Indication: Hodgkin^s disease refractory
     Dosage: 3860 MILLIGRAM, BID
     Route: 042
     Dates: start: 20221123, end: 20221123
  4. DEXAMETHASONE [Suspect]
     Active Substance: DEXAMETHASONE
     Indication: Hodgkin^s disease refractory
     Dosage: 40 MILLIGRAM
     Route: 042
     Dates: start: 20221122, end: 20221214

REACTIONS (1)
  - Anaphylactic shock [Recovered/Resolved]

NARRATIVE: CASE EVENT DATE: 20221214
